FAERS Safety Report 19476673 (Version 2)
Quarter: 2022Q1

REPORT INFORMATION
  Report Type: Spontaneous
  Country: US (occurrence: US)
  Receive Date: 20210630
  Receipt Date: 20220307
  Transmission Date: 20220423
  Serious: No
  Sender: FDA-Public Use
  Company Number: US-PFIZER INC-2021785777

PATIENT
  Age: 70 Year
  Sex: Female

DRUGS (2)
  1. XELJANZ XR [Suspect]
     Active Substance: TOFACITINIB CITRATE
     Dosage: 11 MG
  2. PREDNISONE [Concomitant]
     Active Substance: PREDNISONE

REACTIONS (2)
  - Pain [Unknown]
  - Muscle spasms [Unknown]
